FAERS Safety Report 11196476 (Version 1)
Quarter: 2015Q2

REPORT INFORMATION
  Report Type: Spontaneous
  Country: FR (occurrence: None)
  Receive Date: 20150615
  Receipt Date: 20150615
  Transmission Date: 20150821
  Serious: Yes (Hospitalization, Other)
  Sender: FDA-Public Use
  Company Number: 2015FR0312

PATIENT
  Age: 41 Year
  Sex: Male

DRUGS (3)
  1. ALLOPURINOL. [Concomitant]
     Active Substance: ALLOPURINOL
  2. ANAKINRA [Suspect]
     Active Substance: ANAKINRA
     Indication: GOUTY TOPHUS
     Route: 058
  3. FEBUXOSTAT. [Concomitant]
     Active Substance: FEBUXOSTAT

REACTIONS (2)
  - Pyrexia [None]
  - Lymph node tuberculosis [None]
